FAERS Safety Report 18243057 (Version 1)
Quarter: 2020Q3

REPORT INFORMATION
  Report Type: Spontaneous
  Country: US (occurrence: US)
  Receive Date: 20200908
  Receipt Date: 20200908
  Transmission Date: 20201103
  Serious: Yes (Death)
  Sender: FDA-Public Use
  Company Number: None

PATIENT
  Age: 70 Year
  Sex: Male
  Weight: 134 kg

DRUGS (1)
  1. REMDESIVIR EUA [Suspect]
     Active Substance: REMDESIVIR

REACTIONS (5)
  - Pneumonia [None]
  - Refusal of treatment by relative [None]
  - Acute respiratory distress syndrome [None]
  - Sepsis [None]
  - Blood creatinine increased [None]

NARRATIVE: CASE EVENT DATE: 20200828
